FAERS Safety Report 21387093 (Version 9)
Quarter: 2023Q1

REPORT INFORMATION
  Report Type: Spontaneous
  Country: US (occurrence: US)
  Receive Date: 20220928
  Receipt Date: 20230206
  Transmission Date: 20230418
  Serious: Yes (Other)
  Sender: FDA-Public Use
  Company Number: US-AMGEN-USASP2022166225

PATIENT
  Age: 53 Year
  Sex: Male

DRUGS (1)
  1. CORLANOR [Suspect]
     Active Substance: IVABRADINE HYDROCHLORIDE
     Indication: Heart rate increased
     Dosage: 5 MILLIGRAM, BID
     Route: 065

REACTIONS (15)
  - Pulmonary thrombosis [Unknown]
  - Thrombosis [Unknown]
  - Cardiac failure [Unknown]
  - Joint swelling [Unknown]
  - Off label use [Unknown]
  - Peripheral swelling [Unknown]
  - Ventricular extrasystoles [Unknown]
  - Ulcer [Unknown]
  - Cardiac disorder [Unknown]
  - Oedema due to cardiac disease [Unknown]
  - Ejection fraction decreased [Unknown]
  - Dyspnoea [Unknown]
  - Splenomegaly [Unknown]
  - Hepatomegaly [Unknown]
  - Hypotension [Unknown]
